FAERS Safety Report 12521793 (Version 1)
Quarter: 2016Q3

REPORT INFORMATION
  Report Type: Spontaneous
  Country: TW (occurrence: TW)
  Receive Date: 20160701
  Receipt Date: 20160701
  Transmission Date: 20161109
  Serious: Yes (Hospitalization)
  Sender: FDA-Public Use
  Company Number: TW-IMPAX LABORATORIES, INC-2016-IPXL-00664

PATIENT
  Age: 76 Year
  Sex: Female

DRUGS (1)
  1. DIVALPROEX SODIUM ER [Suspect]
     Active Substance: DIVALPROEX SODIUM
     Indication: MANIA
     Dosage: 500 MG, DAILY
     Route: 065

REACTIONS (2)
  - Hyponatraemia [Recovered/Resolved]
  - Hyperkalaemia [Recovered/Resolved]
